FAERS Safety Report 24936715 (Version 1)
Quarter: 2025Q1

REPORT INFORMATION
  Report Type: Spontaneous
  Country: US (occurrence: US)
  Receive Date: 20250206
  Receipt Date: 20250206
  Transmission Date: 20250408
  Serious: No
  Sender: OTSUKA
  Company Number: US-OTSUKA-2025_002025

PATIENT
  Age: 36 Year
  Sex: Male
  Weight: 129.27 kg

DRUGS (10)
  1. ABILIFY ASIMTUFII [Suspect]
     Active Substance: ARIPIPRAZOLE
     Indication: Bipolar disorder
     Route: 065
     Dates: start: 20250110
  2. ABILIFY ASIMTUFII [Suspect]
     Active Substance: ARIPIPRAZOLE
     Indication: Obsessive-compulsive disorder
  3. ABILIFY ASIMTUFII [Suspect]
     Active Substance: ARIPIPRAZOLE
     Indication: Schizophrenia
  4. ABILIFY MAINTENA [Suspect]
     Active Substance: ARIPIPRAZOLE
     Indication: Obsessive-compulsive disorder
     Dosage: 400 MG, QM
     Route: 065
     Dates: start: 202405
  5. ABILIFY MAINTENA [Suspect]
     Active Substance: ARIPIPRAZOLE
     Indication: Schizophrenia
  6. ABILIFY MAINTENA [Suspect]
     Active Substance: ARIPIPRAZOLE
     Indication: Bipolar disorder
  7. AMLODIPINE [Concomitant]
     Active Substance: AMLODIPINE BESYLATE
     Indication: Product used for unknown indication
     Route: 065
  8. CHOLECALCIFEROL [Concomitant]
     Active Substance: CHOLECALCIFEROL
     Indication: Product used for unknown indication
     Route: 065
  9. TESTOSTERONE [Concomitant]
     Active Substance: TESTOSTERONE
     Indication: Product used for unknown indication
     Route: 065
  10. HYDROXYZINE [Concomitant]
     Active Substance: HYDROXYZINE HYDROCHLORIDE
     Indication: Product used for unknown indication
     Route: 065

REACTIONS (12)
  - Loss of personal independence in daily activities [Not Recovered/Not Resolved]
  - Crying [Not Recovered/Not Resolved]
  - Malaise [Not Recovered/Not Resolved]
  - Mental disorder [Not Recovered/Not Resolved]
  - Panic attack [Not Recovered/Not Resolved]
  - Depression [Not Recovered/Not Resolved]
  - Anxiety [Not Recovered/Not Resolved]
  - Chest pain [Recovered/Resolved]
  - Agitation [Not Recovered/Not Resolved]
  - Product use issue [Unknown]
  - Product use in unapproved indication [Unknown]
  - Drug ineffective [Unknown]

NARRATIVE: CASE EVENT DATE: 20240501
